FAERS Safety Report 7700833-X (Version None)
Quarter: 2011Q3

REPORT INFORMATION
  Report Type: 
  Country: None (occurrence: None)
  Receive Date: 20110822
  Receipt Date: 20110816
  Transmission Date: 20111222
  Serious: Yes (Other)
  Sender: FDA-Public Use
  Company Number: US-ROCHE-797533

PATIENT
  Age: 67 Year
  Sex: Female
  Weight: 45.5 kg

DRUGS (2)
  1. CALCIUM CARBONATE [Concomitant]
  2. BONIVA [Suspect]
     Indication: OSTEOPENIA
     Route: 065

REACTIONS (3)
  - JAW FRACTURE [None]
  - FALL [None]
  - BONE DENSITY DECREASED [None]
